FAERS Safety Report 6383998-4 (Version None)
Quarter: 2009Q4

REPORT INFORMATION
  Report Type: 
  Country: None (occurrence: None)
  Receive Date: 20091001
  Receipt Date: 20090921
  Transmission Date: 20100525
  Serious: Yes (Hospitalization)
  Sender: FDA-Public Use
  Company Number: US-JNJFOC-20090907082

PATIENT
  Age: 47 Year
  Sex: Female

DRUGS (5)
  1. FLEXERIL [Suspect]
     Indication: DRUG USE FOR UNKNOWN INDICATION
     Route: 048
  2. ALPRAZOLAM [Concomitant]
  3. ATENOLOL [Concomitant]
  4. FLUOXETINE [Concomitant]
  5. METHADONE HYDROCHLORIDE [Concomitant]

REACTIONS (1)
  - TORSADE DE POINTES [None]
